FAERS Safety Report 22246829 (Version 1)
Quarter: 2023Q2

REPORT INFORMATION
  Report Type: Spontaneous
  Country: US (occurrence: US)
  Receive Date: 20230424
  Receipt Date: 20230424
  Transmission Date: 20230721
  Serious: No
  Sender: FDA-Public Use
  Company Number: US-Millicent Holdings Ltd.-MILL20230106

PATIENT
  Age: 45 Year
  Sex: Female

DRUGS (1)
  1. FEMRING [Suspect]
     Active Substance: ESTRADIOL ACETATE
     Indication: Oestrogen replacement therapy
     Dosage: 0.10 MG/DAY
     Route: 067

REACTIONS (3)
  - Vulvovaginal discomfort [Recovered/Resolved]
  - Product physical issue [None]
  - Product dose omission issue [None]

NARRATIVE: CASE EVENT DATE: 20230301
